FAERS Safety Report 5249590-X (Version None)
Quarter: 2007Q1

REPORT INFORMATION
  Report Type: 
  Country: None (occurrence: None)
  Receive Date: 20070228
  Receipt Date: 20060329
  Transmission Date: 20070707
  Serious: No
  Sender: FDA-Public Use
  Company Number: US-GLAXOSMITHKLINE-A0599541A

PATIENT
  Age: 42 Year
  Sex: Female

DRUGS (1)
  1. IMITREX [Suspect]
     Indication: MIGRAINE
     Dosage: 6MG AS REQUIRED
     Route: 058

REACTIONS (7)
  - CHEST DISCOMFORT [None]
  - FATIGUE [None]
  - INJECTION SITE REACTION [None]
  - MUSCLE TIGHTNESS [None]
  - PARAESTHESIA [None]
  - SENSATION OF HEAVINESS [None]
  - SENSATION OF PRESSURE [None]
